FAERS Safety Report 6997837-1 (Version None)
Quarter: 2010Q3

REPORT INFORMATION
  Report Type: 
  Country: None (occurrence: None)
  Receive Date: 20100920
  Receipt Date: 20100913
  Transmission Date: 20110219
  Serious: No
  Sender: FDA-Public Use
  Company Number: US-BIOGENIDEC-2010BI031571

PATIENT
  Sex: Female

DRUGS (2)
  1. AVONEX [Suspect]
     Indication: MULTIPLE SCLEROSIS
     Route: 030
     Dates: start: 20090301, end: 20100401
  2. AVONEX [Suspect]
     Route: 030
     Dates: start: 20100401

REACTIONS (9)
  - BLOOD URINE PRESENT [None]
  - HAEMATOCRIT DECREASED [None]
  - HAEMOGLOBIN DECREASED [None]
  - MICTURITION URGENCY [None]
  - POLLAKIURIA [None]
  - RHINORRHOEA [None]
  - URINARY TRACT INFECTION [None]
  - URINARY TRACT PAIN [None]
  - WHITE BLOOD CELL COUNT DECREASED [None]
